FAERS Safety Report 6705267-2 (Version None)
Quarter: 2010Q2

REPORT INFORMATION
  Report Type: 
  Country: None (occurrence: None)
  Receive Date: 20100430
  Receipt Date: 20100420
  Transmission Date: 20101027
  Serious: Yes (Death)
  Sender: FDA-Public Use
  Company Number: GB-CVT-100227

PATIENT

DRUGS (14)
  1. RANEXA [Suspect]
     Indication: MYOCARDIAL ISCHAEMIA
     Dosage: 375 MG, BID
     Route: 048
     Dates: start: 20091221
  2. RANEXA [Suspect]
     Indication: ATRIAL FIBRILLATION
  3. FORMOTEROL [Concomitant]
     Indication: CHRONIC OBSTRUCTIVE PULMONARY DISEASE
     Dates: start: 20080608, end: 20100226
  4. SALBUTAMOL                         /00139501/ [Concomitant]
     Indication: ASTHMA
     Dates: start: 19920330, end: 20100226
  5. PERINDOPRIL [Concomitant]
     Indication: MYOCARDIAL ISCHAEMIA
     Dates: start: 19971126, end: 20100226
  6. NICORANDIL [Concomitant]
     Indication: MYOCARDIAL ISCHAEMIA
     Dates: start: 20080728, end: 20100226
  7. FUROSEMIDE                         /00032601/ [Concomitant]
     Indication: MYOCARDIAL ISCHAEMIA
     Dosage: UNK, UNK
     Dates: start: 20001220, end: 20100226
  8. BISOPROLOL                         /00802601/ [Concomitant]
     Indication: MYOCARDIAL ISCHAEMIA
     Dates: start: 20080702, end: 20100226
  9. ATORVASTATIN CALCIUM [Concomitant]
     Indication: MYOCARDIAL ISCHAEMIA
     Dates: start: 20080605, end: 20100226
  10. ASPIRIN [Concomitant]
     Indication: MYOCARDIAL ISCHAEMIA
     Dates: start: 19971106, end: 20100226
  11. ACETAMINOPHEN AND CODEINE PHOSPHATE [Concomitant]
     Indication: OSTEOARTHRITIS
     Dates: start: 20060113, end: 20100226
  12. CARBOMER [Concomitant]
     Indication: DRY EYE
     Dates: start: 20050628, end: 20100226
  13. LANSOPRAZOLE [Concomitant]
     Indication: GASTRITIS
     Dates: start: 20100114, end: 20100226
  14. FERROUS SULFATE TAB [Concomitant]
     Indication: ANAEMIA
     Dates: start: 20091222, end: 20100226

REACTIONS (1)
  - CIRCULATORY COLLAPSE [None]
